FAERS Safety Report 23582664 (Version 1)
Quarter: 2024Q1

REPORT INFORMATION
  Report Type: Spontaneous
  Country: AU (occurrence: AU)
  Receive Date: 20240229
  Receipt Date: 20240229
  Transmission Date: 20240410
  Serious: Yes (Hospitalization, Other)
  Sender: FDA-Public Use
  Company Number: AU-BRISTOL-MYERS SQUIBB COMPANY-2024-031991

PATIENT
  Age: 50 Year
  Sex: Female

DRUGS (3)
  1. ABRAXANE [Suspect]
     Active Substance: PACLITAXEL
     Indication: Triple negative breast cancer
  2. KEYTRUDA [Suspect]
     Active Substance: PEMBROLIZUMAB
     Indication: Triple negative breast cancer
  3. DENOSUMAB [Suspect]
     Active Substance: DENOSUMAB
     Indication: Triple negative breast cancer

REACTIONS (4)
  - Hepatic lesion [Unknown]
  - Hepatic steatosis [Unknown]
  - Hypertransaminasaemia [Unknown]
  - Malignant neoplasm progression [Unknown]
